FAERS Safety Report 10236863 (Version 1)
Quarter: 2014Q2

REPORT INFORMATION
  Report Type: Spontaneous
  Country: BR (occurrence: BR)
  Receive Date: 20140613
  Receipt Date: 20140613
  Transmission Date: 20141212
  Serious: Yes (Hospitalization, Other)
  Sender: FDA-Public Use
  Company Number: BR-PFIZER INC-2014159855

PATIENT
  Sex: Female

DRUGS (1)
  1. TYGACIL [Suspect]

REACTIONS (3)
  - Urinary tract infection pseudomonal [Not Recovered/Not Resolved]
  - Amylase abnormal [Not Recovered/Not Resolved]
  - Nausea [Unknown]
